FAERS Safety Report 8419273-3 (Version None)
Quarter: 2012Q2

REPORT INFORMATION
  Report Type: 
  Country: None (occurrence: None)
  Receive Date: 20120607
  Receipt Date: 20120229
  Transmission Date: 20120825
  Serious: Yes (Other)
  Sender: FDA-Public Use
  Company Number: US-ROCHE-1074682

PATIENT
  Sex: Female

DRUGS (11)
  1. BONIVA [Suspect]
     Dates: start: 20090720
  2. BONIVA [Suspect]
     Dates: start: 20081215
  3. BONIVA [Suspect]
     Dates: start: 20100125
  4. BONIVA [Suspect]
     Dates: start: 20080522
  5. BONIVA [Suspect]
     Dates: start: 20091019
  6. FOSAMAX [Suspect]
  7. BONIVA [Suspect]
     Dates: start: 20080825
  8. FOSAMAX [Suspect]
     Indication: OSTEOPOROSIS
     Dates: start: 20020214, end: 20070529
  9. FEMARA [Concomitant]
  10. BONIVA [Suspect]
     Dates: start: 20090407
  11. BONIVA [Suspect]
     Indication: OSTEOPOROSIS
     Dates: start: 20070101

REACTIONS (1)
  - INJURY [None]
